FAERS Safety Report 7260183-5 (Version None)
Quarter: 2011Q1

REPORT INFORMATION
  Report Type: 
  Country: None (occurrence: None)
  Receive Date: 20110130
  Receipt Date: 20101015
  Transmission Date: 20110831
  Serious: No
  Sender: FDA-Public Use
  Company Number: US-ABBOTT-10P-163-0679338-00

PATIENT
  Sex: Female
  Weight: 97.61 kg

DRUGS (8)
  1. VITAMIN D [Concomitant]
     Indication: VITAMIN D DECREASED
  2. OSCAL WITH VITAMIN D [Concomitant]
     Indication: PRODUCT USED FOR UNKNOWN INDICATION
  3. NORVASC [Concomitant]
     Indication: HYPERTENSION
  4. AVAPRO [Concomitant]
     Indication: HYPERTENSION
  5. HUMIRA [Suspect]
     Indication: RHEUMATOID ARTHRITIS
     Dates: start: 20090101, end: 20101001
  6. METHOTREXATE [Concomitant]
     Indication: RHEUMATOID ARTHRITIS
  7. SYNTHROID [Concomitant]
     Indication: HYPOTHYROIDISM
  8. FOLIC ACID [Concomitant]
     Indication: PRODUCT USED FOR UNKNOWN INDICATION

REACTIONS (4)
  - NASAL CONGESTION [None]
  - THROAT IRRITATION [None]
  - OROPHARYNGEAL PAIN [None]
  - URINARY TRACT INFECTION [None]
